FAERS Safety Report 23748738 (Version 1)
Quarter: 2024Q2

REPORT INFORMATION
  Report Type: Spontaneous
  Country: US (occurrence: US)
  Receive Date: 20240416
  Receipt Date: 20240416
  Transmission Date: 20240716
  Serious: No
  Sender: FDA-Public Use
  Company Number: US-Calliditas-2024CAL00552

PATIENT
  Age: 60 Year
  Sex: Female

DRUGS (1)
  1. TARPEYO [Suspect]
     Active Substance: BUDESONIDE
     Indication: IgA nephropathy
     Dosage: 16MG (4MG CAPSULES) ONCE DAILY
     Route: 048
     Dates: start: 20240206

REACTIONS (7)
  - Drug hypersensitivity [Unknown]
  - Blood pressure increased [Unknown]
  - Blood glucose increased [Unknown]
  - Dizziness [Unknown]
  - Nausea [Unknown]
  - Dysgeusia [Unknown]
  - Weight decreased [Unknown]
